FAERS Safety Report 5644424-3 (Version None)
Quarter: 2008Q1

REPORT INFORMATION
  Report Type: 
  Country: None (occurrence: None)
  Receive Date: 20080229
  Receipt Date: 20080218
  Transmission Date: 20080703
  Serious: Yes (Hospitalization)
  Sender: FDA-Public Use
  Company Number: TR-ELI_LILLY_AND_COMPANY-TR200802004372

PATIENT
  Age: 66 Year
  Sex: Female
  Weight: 63 kg

DRUGS (7)
  1. HUMULIN 70/30 [Suspect]
     Dosage: 25 IU, EACH MORNING
     Route: 058
  2. HUMULIN 70/30 [Suspect]
     Dosage: 22 IU, EACH EVENING
     Route: 058
     Dates: start: 20070101
  3. NORVASC [Concomitant]
     Indication: HYPERTENSION
     Dosage: UNK, DAILY (1/D)
     Route: 048
  4. DILATREND [Concomitant]
     Indication: HYPERTENSION
     Dosage: UNK, DAILY (1/D)
     Route: 048
  5. LIPOFENE [Concomitant]
     Indication: HYPERCHOLESTEROLAEMIA
     Dosage: UNK, DAILY (1/D)
     Route: 048
  6. CORASPIN [Concomitant]
     Dosage: UNK, 3/D
     Route: 048
  7. DIAFORMIN [Concomitant]
     Dosage: UNK, 3/D
     Route: 048

REACTIONS (3)
  - BLOOD GLUCOSE ABNORMAL [None]
  - NEPHROLITHIASIS [None]
  - VISUAL ACUITY REDUCED [None]
